FAERS Safety Report 20696480 (Version 1)
Quarter: 2022Q2

REPORT INFORMATION
  Report Type: Spontaneous
  Country: US (occurrence: None)
  Receive Date: 20220408
  Receipt Date: 20220408
  Transmission Date: 20220721
  Serious: No
  Sender: FDA-Public Use
  Company Number: None

PATIENT
  Age: 75 Year
  Sex: Male

DRUGS (9)
  1. INLYTA [Suspect]
     Active Substance: AXITINIB
     Indication: Renal cancer
     Dosage: OTHER FREQUENCY : Q12HOURS ;?
     Route: 048
  2. ATORVASTATIN [Concomitant]
  3. DOXAZOSIN [Concomitant]
  4. LIDOCAINE-PRILOCAINE [Concomitant]
  5. LIPITOR [Concomitant]
  6. METOROLOL [Concomitant]
  7. PROCHLORPERAZINE [Concomitant]
  8. SPIRONOLACTONE [Concomitant]
  9. TYLENOL [Concomitant]

REACTIONS (6)
  - Diarrhoea [None]
  - Decreased appetite [None]
  - Musculoskeletal stiffness [None]
  - Hypokalaemia [None]
  - Fatigue [None]
  - Dizziness [None]
